FAERS Safety Report 16168517 (Version 1)
Quarter: 2019Q2

REPORT INFORMATION
  Report Type: Spontaneous
  Country: ID (occurrence: ID)
  Receive Date: 20190408
  Receipt Date: 20190408
  Transmission Date: 20190711
  Serious: Yes (Hospitalization, Other)
  Sender: FDA-Public Use
  Company Number: ID-BAYER-2019-061797

PATIENT
  Age: 41 Year
  Sex: Male

DRUGS (7)
  1. TICAGRELOR. [Interacting]
     Active Substance: TICAGRELOR
     Indication: CARDIAC VENTRICULAR THROMBOSIS
  2. TICAGRELOR. [Interacting]
     Active Substance: TICAGRELOR
     Indication: ACUTE MYOCARDIAL INFARCTION
  3. WARFARIN [Interacting]
     Active Substance: WARFARIN
     Indication: ACUTE MYOCARDIAL INFARCTION
  4. ENOXAPARIN [Interacting]
     Active Substance: ENOXAPARIN
     Indication: ACUTE MYOCARDIAL INFARCTION
  5. ACETYLSALICYLIC ACID (CARDIO) [Interacting]
     Active Substance: ASPIRIN
     Indication: CARDIAC VENTRICULAR THROMBOSIS
  6. ACETYLSALICYLIC ACID (CARDIO) [Suspect]
     Active Substance: ASPIRIN
     Indication: ACUTE MYOCARDIAL INFARCTION
  7. WARFARIN [Interacting]
     Active Substance: WARFARIN
     Indication: CARDIAC VENTRICULAR THROMBOSIS

REACTIONS (4)
  - Cardiac tamponade [None]
  - Pericardial haemorrhage [None]
  - Labelled drug-drug interaction medication error [None]
  - Dressler^s syndrome [None]
